FAERS Safety Report 6565368-9 (Version None)
Quarter: 2010Q1

REPORT INFORMATION
  Report Type: 
  Country: None (occurrence: None)
  Receive Date: 20100201
  Receipt Date: 20100122
  Transmission Date: 20100710
  Serious: Yes (Congenital Anomaly)
  Sender: FDA-Public Use
  Company Number: GXKR2010GB01109

PATIENT

DRUGS (3)
  1. VALPROIC ACID (NGX) [Suspect]
     Dosage: MATERNAL DOSE: 600 MG
     Route: 064
  2. LAMOTRIGINE (NGX) [Suspect]
     Dosage: MATERNAL DOSE: 400 MG
     Route: 064
  3. FOLIC ACID [Concomitant]
     Dosage: MATERNAL DOSE: 5 MG
     Route: 064

REACTIONS (2)
  - DRUG EXPOSURE DURING PREGNANCY [None]
  - LIMB DEFORMITY [None]
